FAERS Safety Report 15933590 (Version 1)
Quarter: 2019Q1

REPORT INFORMATION
  Report Type: Spontaneous
  Country: TR (occurrence: TR)
  Receive Date: 20190207
  Receipt Date: 20190207
  Transmission Date: 20190417
  Serious: Yes (Hospitalization)
  Sender: FDA-Public Use
  Company Number: TR-FERA PHARMACEUTICALS, LLC-2019PRG00146

PATIENT
  Age: 57 Year
  Sex: Female

DRUGS (5)
  1. DEXAMETHASONE. [Suspect]
     Active Substance: DEXAMETHASONE
     Dosage: 40 MG, 1X/WEEK (ON DAYS 1, 8, 15 AND 22 OF EACH MONTH)
     Route: 048
  2. CYCLOPHOSPHAMIDE. [Concomitant]
     Active Substance: CYCLOPHOSPHAMIDE
     Dosage: 450 MG, 1X/WEEK (ON DAYS 1, 8, 15 AND 22 OF EACH MONTH)
     Route: 048
  3. BORTEZOMIB. [Suspect]
     Active Substance: BORTEZOMIB
     Indication: PLASMA CELL MYELOMA
     Dosage: 2.2 MG, 1X/WEEK (ON DAYS 1, 8, 15 AND 22 OF EACH MONTH)
     Route: 058
  4. CYCLOPHOSPHAMIDE. [Concomitant]
     Active Substance: CYCLOPHOSPHAMIDE
     Dosage: 1 MG, 1X/WEEK
     Route: 042
  5. DEXAMETHASONE. [Suspect]
     Active Substance: DEXAMETHASONE
     Indication: PLASMA CELL MYELOMA
     Dosage: 20 MG, 1X/DAY (DAYS 1, 2, 3, AND 4 OF EACH WEEK)
     Route: 048

REACTIONS (2)
  - Drug interaction [Unknown]
  - Mania [Recovering/Resolving]
